FAERS Safety Report 8622201-9 (Version None)
Quarter: 2012Q3

REPORT INFORMATION
  Report Type: 
  Country: None (occurrence: None)
  Receive Date: 20120827
  Receipt Date: 20120821
  Transmission Date: 20120928
  Serious: Yes (Hospitalization)
  Sender: FDA-Public Use
  Company Number: US-AMGEN-USASP2012052859

PATIENT
  Sex: Female

DRUGS (2)
  1. ENBREL [Suspect]
     Indication: RHEUMATOID ARTHRITIS
     Dosage: 50 MG, QWK
     Route: 058
  2. METHOTREXATE [Concomitant]
     Dosage: 2.5 MG, 6 TIMES/WK
     Dates: start: 20100201

REACTIONS (5)
  - OSTEITIS [None]
  - RHEUMATOID ARTHRITIS [None]
  - JOINT DESTRUCTION [None]
  - SYNOVIAL CYST [None]
  - BURSITIS [None]
